FAERS Safety Report 5465820-3 (Version None)
Quarter: 2007Q3

REPORT INFORMATION
  Report Type: 
  Country: None (occurrence: None)
  Receive Date: 20070924
  Receipt Date: 20070920
  Transmission Date: 20080115
  Serious: Yes (Other)
  Sender: FDA-Public Use
  Company Number: US-ASTRAZENECA-2007UW22146

PATIENT
  Sex: Female

DRUGS (8)
  1. SYMBICORT PMDI [Suspect]
     Dosage: 80/4.5 UG/TWO INHALATIONS TWICE DAILY
     Route: 055
  2. SYMBICORT PMDI [Suspect]
     Dosage: 80/4.5 UG/ONE INHALATIONS TWICE DAILY
     Route: 055
  3. ZYRTEC [Suspect]
  4. CLIMARA [Suspect]
  5. ADVAIR DISKUS 100/50 [Suspect]
     Dosage: 250/50
  6. LASIX [Suspect]
  7. THEOPHYLLINE [Suspect]
  8. VIROPTIC [Suspect]
     Route: 047

REACTIONS (2)
  - PHOTOPHOBIA [None]
  - RETINAL DISORDER [None]
